FAERS Safety Report 6740289-7 (Version None)
Quarter: 2010Q2

REPORT INFORMATION
  Report Type: 
  Country: None (occurrence: None)
  Receive Date: 20100525
  Receipt Date: 20100520
  Transmission Date: 20101027
  Serious: Yes (Hospitalization, Disabling, Other)
  Sender: FDA-Public Use
  Company Number: US-MERCK-0902USA02862

PATIENT
  Age: 36 Year
  Sex: Female
  Weight: 109 kg

DRUGS (4)
  1. FOSAMAX [Suspect]
     Indication: OSTEOPOROSIS
     Route: 048
     Dates: start: 20020326, end: 20020801
  2. ATENOLOL [Concomitant]
     Indication: TACHYCARDIA
     Route: 048
     Dates: start: 20010101
  3. CYMBALTA [Concomitant]
     Indication: DEPRESSION
     Route: 048
     Dates: start: 20010101
  4. CELLCEPT [Concomitant]
     Indication: POLYMYOSITIS
     Route: 065
     Dates: start: 20020101

REACTIONS (71)
  - ABDOMINAL HERNIA [None]
  - ADVERSE DRUG REACTION [None]
  - ADVERSE EVENT [None]
  - ANGIOPATHY [None]
  - ASPIRATION [None]
  - BIPOLAR DISORDER [None]
  - BONE DENSITY DECREASED [None]
  - BREAST NECROSIS [None]
  - CARDIAC FAILURE CONGESTIVE [None]
  - CATARACT [None]
  - CHRONIC OBSTRUCTIVE PULMONARY DISEASE [None]
  - CLOSTRIDIAL INFECTION [None]
  - CONSTIPATION [None]
  - CONVULSION [None]
  - DEHYDRATION [None]
  - DELIRIUM [None]
  - DENTAL CARIES [None]
  - DERMATITIS CONTACT [None]
  - DRUG HYPERSENSITIVITY [None]
  - DRY MOUTH [None]
  - ENTEROCOCCAL INFECTION [None]
  - FALL [None]
  - FATIGUE [None]
  - FUNGAL INFECTION [None]
  - GASTROENTERITIS [None]
  - GASTROINTESTINAL DISORDER [None]
  - HEPATIC STEATOSIS [None]
  - HEPATOMEGALY [None]
  - HIATUS HERNIA [None]
  - HYPOTHYROIDISM [None]
  - IMPAIRED HEALING [None]
  - IMPULSIVE BEHAVIOUR [None]
  - INFLUENZA LIKE ILLNESS [None]
  - INTERSTITIAL LUNG DISEASE [None]
  - KIDNEY INFECTION [None]
  - LYMPHADENITIS [None]
  - LYMPHADENOPATHY [None]
  - MYALGIA [None]
  - NAUSEA [None]
  - OEDEMA [None]
  - ORAL CANDIDIASIS [None]
  - ORAL INFECTION [None]
  - OROPHARYNGEAL PAIN [None]
  - OSTEOMYELITIS [None]
  - OSTEOMYELITIS ACUTE [None]
  - OSTEONECROSIS OF JAW [None]
  - PAIN IN JAW [None]
  - PALPITATIONS [None]
  - PANCREATITIS [None]
  - PHOBIA [None]
  - POLYMYOSITIS [None]
  - PRURITUS [None]
  - PRURITUS ALLERGIC [None]
  - PULMONARY HYPERTENSION [None]
  - RESPIRATORY FAILURE [None]
  - RESTLESSNESS [None]
  - RIB FRACTURE [None]
  - SPINAL COMPRESSION FRACTURE [None]
  - SPINAL FRACTURE [None]
  - SWELLING [None]
  - TEMPOROMANDIBULAR JOINT SYNDROME [None]
  - TINEA INFECTION [None]
  - TOOTH DISORDER [None]
  - TOOTH FRACTURE [None]
  - TOOTH INFECTION [None]
  - TOOTHACHE [None]
  - UTERINE LEIOMYOMA [None]
  - VOMITING [None]
  - WEIGHT DECREASED [None]
  - WEIGHT INCREASED [None]
  - WOUND [None]
